FAERS Safety Report 7422838-9 (Version None)
Quarter: 2011Q2

REPORT INFORMATION
  Report Type: 
  Country: None (occurrence: None)
  Receive Date: 20110419
  Receipt Date: 20091122
  Transmission Date: 20111010
  Serious: Yes (Hospitalization, Other)
  Sender: FDA-Public Use
  Company Number: US-BAYER-200940101NA

PATIENT
  Age: 45 Year
  Sex: Male
  Weight: 92.7 kg

DRUGS (15)
  1. DOPAMINE HCL [Concomitant]
     Dosage: 250 MG, IN 250 ML DEXTROSE
     Route: 041
     Dates: start: 20040101
  2. AMICAR [Concomitant]
     Dosage: ANESTHESIA RECORDS
     Dates: start: 20040101
  3. SODIUM BICARBONATE [Concomitant]
     Indication: ACIDOSIS
     Dosage: UNK
     Dates: start: 20040101
  4. REOPRO [Concomitant]
     Dosage: UNK
     Route: 042
     Dates: start: 20040101
  5. PROPOFOL [Concomitant]
     Dosage: UNK
     Route: 041
     Dates: start: 20040101
  6. PRISMA [Concomitant]
     Dosage: UNK
     Dates: end: 20040105
  7. CONTRAST MEDIA [Concomitant]
     Indication: ANGIOPLASTY
     Dosage: UNK
     Dates: start: 20040101
  8. EPINEPHRINE [Concomitant]
     Dosage: 4 MG, IN 250 ML NORMAL SALINE
     Route: 042
     Dates: start: 20040101, end: 20040103
  9. NITROGLYCERIN [Concomitant]
     Dosage: 50 MG, 250 ML DEXTROSE
     Route: 042
     Dates: start: 20040101
  10. BUMEX [Concomitant]
     Indication: URINE OUTPUT DECREASED
     Dosage: UNK
     Route: 041
     Dates: start: 20040101, end: 20040105
  11. EPOGEN [Concomitant]
     Indication: ANAEMIA
  12. TRASYLOL [Suspect]
     Indication: CORONARY ARTERY BYPASS
     Route: 042
     Dates: start: 20040101
  13. DIAMOX [Concomitant]
     Indication: URINE OUTPUT DECREASED
     Dosage: UNK
     Dates: start: 20040102
  14. HEPARIN [Concomitant]
     Dosage: UNK
     Dates: end: 20040105
  15. MANNITOL [Concomitant]
     Dosage: UNK
     Route: 042
     Dates: start: 20040101, end: 20040101

REACTIONS (11)
  - STRESS [None]
  - ANHEDONIA [None]
  - ANXIETY [None]
  - RENAL FAILURE [None]
  - RENAL INJURY [None]
  - UNEVALUABLE EVENT [None]
  - PAIN [None]
  - RENAL IMPAIRMENT [None]
  - EMOTIONAL DISTRESS [None]
  - FEAR [None]
  - INJURY [None]
